FAERS Safety Report 6166364-6 (Version None)
Quarter: 2009Q2

REPORT INFORMATION
  Report Type: 
  Country: None (occurrence: None)
  Receive Date: 20090424
  Receipt Date: 20080627
  Transmission Date: 20091009
  Serious: No
  Sender: FDA-Public Use
  Company Number: A0732912A

PATIENT
  Age: 57 Year
  Sex: Female

DRUGS (2)
  1. DEXAMPHETAMINE SULPHATE [Suspect]
     Dosage: 15MG PER DAY
     Route: 048
     Dates: start: 20080201
  2. DEXEDRINE [Suspect]
     Route: 048
     Dates: start: 20000101

REACTIONS (1)
  - DRUG INEFFECTIVE [None]
